FAERS Safety Report 12943415 (Version 2)
Quarter: 2016Q4

REPORT INFORMATION
  Report Type: Spontaneous
  Country: FR (occurrence: FR)
  Receive Date: 20161115
  Receipt Date: 20161222
  Transmission Date: 20170207
  Serious: No
  Sender: FDA-Public Use
  Company Number: FR-ELI_LILLY_AND_COMPANY-FR201611000850

PATIENT
  Sex: Male
  Weight: 89 kg

DRUGS (3)
  1. CIALIS [Suspect]
     Active Substance: TADALAFIL
     Indication: ERECTILE DYSFUNCTION
     Dosage: 10 MG, OTHER (ABOUT ONCE WEEKLY)
     Route: 048
     Dates: start: 201609
  2. LERCANIDIPINE [Concomitant]
     Active Substance: LERCANIDIPINE
     Dosage: 1 DF, QD
     Route: 048
     Dates: start: 201605
  3. CIALIS [Suspect]
     Active Substance: TADALAFIL
     Dosage: 20 MG, OTHER (ABOUT ONCE WEEKLY)
     Route: 048
     Dates: start: 201610

REACTIONS (1)
  - Haematuria [Recovered/Resolved]
